FAERS Safety Report 7720315-9 (Version None)
Quarter: 2011Q3

REPORT INFORMATION
  Report Type: 
  Country: None (occurrence: None)
  Receive Date: 20110831
  Receipt Date: 20110826
  Transmission Date: 20111222
  Serious: No
  Sender: FDA-Public Use
  Company Number: US-PFIZER INC-2011200366

PATIENT
  Sex: Male

DRUGS (3)
  1. DICLOFENAC EPOLAMINE [Suspect]
     Dosage: UNK
  2. MELOXICAM [Suspect]
     Dosage: UNK
  3. IBUPROFEN [Suspect]
     Dosage: UNK

REACTIONS (2)
  - NIGHTMARE [None]
  - SLEEP DISORDER [None]
